FAERS Safety Report 21246019 (Version 1)
Quarter: 2022Q3

REPORT INFORMATION
  Report Type: Spontaneous
  Country: IL (occurrence: None)
  Receive Date: 20220824
  Receipt Date: 20220824
  Transmission Date: 20221027
  Serious: Yes (Other)
  Sender: FDA-Public Use
  Company Number: IL-ROCHE-3161607

PATIENT
  Age: 53 Year
  Sex: Male

DRUGS (3)
  1. AVASTIN [Suspect]
     Active Substance: BEVACIZUMAB
     Indication: Glioblastoma
     Route: 042
     Dates: start: 201812, end: 202203
  2. ASPIRIN [Concomitant]
     Active Substance: ASPIRIN
  3. LEVETIRACETAM [Concomitant]
     Active Substance: LEVETIRACETAM

REACTIONS (6)
  - Proteinuria [Unknown]
  - Aphasia [Unknown]
  - Muscular weakness [Unknown]
  - Dysphagia [Unknown]
  - Cerebrovascular accident [Unknown]
  - Facial paresis [Unknown]

NARRATIVE: CASE EVENT DATE: 20220501
